FAERS Safety Report 6949843-0 (Version None)
Quarter: 2010Q3

REPORT INFORMATION
  Report Type: 
  Country: None (occurrence: None)
  Receive Date: 20100828
  Receipt Date: 20100114
  Transmission Date: 20110219
  Serious: No
  Sender: FDA-Public Use
  Company Number: US-ABBOTT-10P-163-0620060-00

PATIENT
  Sex: Male
  Weight: 70.37 kg

DRUGS (6)
  1. NIASPAN [Suspect]
     Indication: HIGH DENSITY LIPOPROTEIN DECREASED
     Dosage: TAKING SAMPLES WITH ASPIRIN AND WITH LOW FAT FOOD
     Route: 048
  2. CRESTOR [Concomitant]
     Indication: HIGH DENSITY LIPOPROTEIN DECREASED
     Dosage: EVERY OTHER DAY
     Route: 048
  3. LISINOPRIL [Concomitant]
     Indication: HYPERTENSION
     Dosage: AT BEDTIME
     Route: 048
  4. ATENOLOL [Concomitant]
     Indication: HYPERTENSION
     Dosage: DAILY IN AM
     Route: 048
  5. PLAVIX [Concomitant]
     Indication: STENT PLACEMENT
     Dosage: DAILY IN AM
     Route: 048
  6. ASPIRIN [Concomitant]
     Indication: PRODUCT USED FOR UNKNOWN INDICATION
     Dosage: DAILY QHS, 30 MIN BEFORE NIASPAN
     Route: 048

REACTIONS (4)
  - ABDOMINAL DISCOMFORT [None]
  - HEADACHE [None]
  - MUSCLE SPASMS [None]
  - PAIN IN EXTREMITY [None]
